FAERS Safety Report 5297281-1 (Version None)
Quarter: 2007Q2

REPORT INFORMATION
  Report Type: 
  Country: None (occurrence: None)
  Receive Date: 20070416
  Receipt Date: 20070409
  Transmission Date: 20071010
  Serious: Yes (Hospitalization)
  Sender: FDA-Public Use
  Company Number: ES-ELI_LILLY_AND_COMPANY-ES200704002286

PATIENT
  Age: 60 Year
  Sex: Female

DRUGS (7)
  1. GEMZAR [Suspect]
     Indication: MALIGNANT HEPATOBILIARY NEOPLASM
     Dates: start: 20070220, end: 20070220
  2. XELODA [Concomitant]
     Indication: MALIGNANT HEPATOBILIARY NEOPLASM
     Dates: start: 20070220, end: 20070220
  3. CAPOTEN [Concomitant]
     Dosage: 50 MG, DAILY (1/D)
     Route: 048
  4. OMEPRAZOLE [Concomitant]
     Dosage: 20 MG, DAILY (1/D)
     Route: 048
  5. METAMIZOL [Concomitant]
  6. EMPORTAL [Concomitant]
  7. ONDANSETRON [Concomitant]
     Dates: start: 20070220, end: 20070220

REACTIONS (2)
  - OESOPHAGITIS [None]
  - VOMITING [None]
